FAERS Safety Report 14035530 (Version 1)
Quarter: 2017Q4

REPORT INFORMATION
  Report Type: Spontaneous
  Country: RU (occurrence: RU)
  Receive Date: 20171003
  Receipt Date: 20171003
  Transmission Date: 20180321
  Serious: Yes (Other)
  Sender: FDA-Public Use
  Company Number: RU-BAYER-2017-187388

PATIENT
  Age: 30 Year
  Sex: Male

DRUGS (1)
  1. ASPIRIN 500 MG [Suspect]
     Active Substance: ASPIRIN
     Dosage: 500 MG, QD
     Route: 048
     Dates: start: 20170726, end: 20170726

REACTIONS (2)
  - Face oedema [Recovering/Resolving]
  - Dyspnoea [Recovering/Resolving]

NARRATIVE: CASE EVENT DATE: 20170726
